FAERS Safety Report 18090918 (Version 3)
Quarter: 2025Q1

REPORT INFORMATION
  Report Type: Spontaneous
  Country: IT (occurrence: IT)
  Receive Date: 20200730
  Receipt Date: 20250201
  Transmission Date: 20250409
  Serious: Yes (Death, Other)
  Sender: ACCORD
  Company Number: IT-ACCORD-193593

PATIENT
  Age: 64 Year
  Sex: Female

DRUGS (12)
  1. BENDAMUSTINE [Suspect]
     Active Substance: BENDAMUSTINE
     Indication: Chronic lymphocytic leukaemia
  2. ETOPOSIDE [Suspect]
     Active Substance: ETOPOSIDE
     Indication: Chronic lymphocytic leukaemia
  3. CYTARABINE [Suspect]
     Active Substance: CYTARABINE
     Indication: Chronic lymphocytic leukaemia
  4. FLUDARABINE [Suspect]
     Active Substance: FLUDARABINE PHOSPHATE
     Indication: Chronic lymphocytic leukaemia
  5. CYCLOPHOSPHAMIDE [Suspect]
     Active Substance: CYCLOPHOSPHAMIDE
     Indication: Chronic lymphocytic leukaemia
  6. CARMUSTINE [Suspect]
     Active Substance: CARMUSTINE
     Indication: Chronic lymphocytic leukaemia
  7. MELPHALAN [Suspect]
     Active Substance: MELPHALAN
     Indication: Chronic lymphocytic leukaemia
  8. OFATUMUMAB [Suspect]
     Active Substance: OFATUMUMAB
     Indication: Chronic lymphocytic leukaemia
  9. RITUXIMAB [Suspect]
     Active Substance: RITUXIMAB
     Indication: Chronic lymphocytic leukaemia
     Dates: start: 201510, end: 201512
  10. IDELALISIB [Suspect]
     Active Substance: IDELALISIB
     Indication: Chronic lymphocytic leukaemia
     Route: 048
     Dates: start: 201510
  11. IDELALISIB [Suspect]
     Active Substance: IDELALISIB
     Indication: Chronic lymphocytic leukaemia
     Dosage: RESTARTED AT A REDUCED DOSE
     Route: 048
     Dates: start: 201510
  12. IDELALISIB [Suspect]
     Active Substance: IDELALISIB
     Indication: Chronic lymphocytic leukaemia
     Route: 048
     Dates: start: 201609

REACTIONS (4)
  - Progressive multifocal leukoencephalopathy [Fatal]
  - Immune reconstitution inflammatory syndrome [Unknown]
  - JC virus infection [Unknown]
  - Off label use [Unknown]

NARRATIVE: CASE EVENT DATE: 20161201
